FAERS Safety Report 24032360 (Version 2)
Quarter: 2024Q3

REPORT INFORMATION
  Report Type: Spontaneous
  Country: IT (occurrence: IT)
  Receive Date: 20240701
  Receipt Date: 20240712
  Transmission Date: 20241017
  Serious: Yes (Other)
  Sender: AUROBINDO
  Company Number: IT-ROCHE-2816936

PATIENT
  Age: 62 Year
  Sex: Male

DRUGS (9)
  1. DOXORUBICIN [Suspect]
     Active Substance: DOXORUBICIN
     Indication: Product used for unknown indication
     Dosage: 89 MILLIGRAM (28 DAYS BETWEEN C1 AND C2, FROM C2 TO C6 EVERY 21 DAYS)
     Route: 065
     Dates: start: 20200806
  2. VINCRISTINE [Suspect]
     Active Substance: VINCRISTINE
     Indication: Product used for unknown indication
     Dosage: 1 MILLIGRAM, CYCLICAL (28 DAYS BETWEEN C1 AND C2, FROM C2 TO C6 EVERY 21 DAYS)
     Route: 065
     Dates: start: 20200806
  3. CYCLOPHOSPHAMIDE [Suspect]
     Active Substance: CYCLOPHOSPHAMIDE
     Indication: Product used for unknown indication
     Dosage: 1340 MILLIGRAM (28 DAYS BETWEEN C1 AND C2, FROM C2 TO C6 EVERY 21 DAYS)
     Route: 065
     Dates: start: 20200806
  4. OBINUTUZUMAB [Suspect]
     Active Substance: OBINUTUZUMAB
     Indication: Follicular lymphoma
     Dosage: UNK
     Route: 042
     Dates: start: 20200806
  5. OBINUTUZUMAB [Suspect]
     Active Substance: OBINUTUZUMAB
     Dosage: UNK
     Route: 065
  6. OBINUTUZUMAB [Suspect]
     Active Substance: OBINUTUZUMAB
     Dosage: 1000 MILLIGRAM 21 DAY (NUMBER OF CYCLES RECEIVED (AT STUDY ENTRY):3)
     Route: 042
     Dates: start: 20200813
  7. PREDNISONE [Suspect]
     Active Substance: PREDNISONE
     Indication: Product used for unknown indication
     Dosage: 125 MILLIGRAM (28 DAYS BETWEEN C1 AND C2, FROM C2 TO C6 EVERY 21 DAYS)
     Route: 065
     Dates: start: 20200806
  8. PREDNISONE [Suspect]
     Active Substance: PREDNISONE
     Dosage: 50 MILLIGRAM
     Route: 065
     Dates: start: 20200808, end: 20200808
  9. PREDNISONE [Suspect]
     Active Substance: PREDNISONE
     Dosage: 25 MILLIGRAM
     Route: 065
     Dates: start: 20200810

REACTIONS (16)
  - Neutropenia [Recovered/Resolved]
  - Erectile dysfunction [Unknown]
  - Anaemia [Recovered/Resolved]
  - Dysuria [Unknown]
  - Paraesthesia [Unknown]
  - Pruritus [Recovering/Resolving]
  - Nausea [Recovered/Resolved]
  - Tinnitus [Unknown]
  - Cough [Recovering/Resolving]
  - Blepharitis [Recovered/Resolved]
  - Diarrhoea [Recovering/Resolving]
  - Influenza [Recovering/Resolving]
  - Anal haemorrhage [Recovered/Resolved]
  - Conjunctivitis [Recovered/Resolved]
  - Off label use [Unknown]
  - Product use issue [Unknown]

NARRATIVE: CASE EVENT DATE: 20200524
